APPROVED DRUG PRODUCT: BETAMETHASONE DIPROPIONATE
Active Ingredient: BETAMETHASONE DIPROPIONATE
Strength: EQ 0.05% BASE/SPRAY
Dosage Form/Route: SPRAY;TOPICAL
Application: A211722 | Product #001
Applicant: SUN PHARMA CANADA INC
Approved: Jun 17, 2020 | RLD: No | RS: No | Type: DISCN